FAERS Safety Report 18639876 (Version 1)
Quarter: 2020Q4

REPORT INFORMATION
  Report Type: Spontaneous
  Country: DE (occurrence: DE)
  Receive Date: 20201220
  Receipt Date: 20201220
  Transmission Date: 20210114
  Serious: No
  Sender: FDA-Public Use
  Company Number: DE-PACIRA-202000059

PATIENT

DRUGS (1)
  1. EXPAREL [Suspect]
     Active Substance: BUPIVACAINE
     Indication: METABOLIC SURGERY
     Dosage: UNKNOWN
     Route: 065

REACTIONS (2)
  - Injection site inflammation [Unknown]
  - Injection site erythema [Unknown]
